FAERS Safety Report 17658432 (Version 2)
Quarter: 2020Q2

REPORT INFORMATION
  Report Type: Spontaneous
  Country: FR (occurrence: FR)
  Receive Date: 20200412
  Receipt Date: 20200422
  Transmission Date: 20200713
  Serious: Yes (Other)
  Sender: FDA-Public Use
  Company Number: FR-AUROBINDO-AUR-APL-2020-017400

PATIENT
  Age: 40 Year
  Sex: Male
  Weight: 68 kg

DRUGS (1)
  1. FINASTERIDE ARROW 1 MG FILM COATED TABLETS [Suspect]
     Active Substance: FINASTERIDE
     Indication: ALOPECIA
     Dosage: 1 DOSAGE FORM, ONCE A DAY
     Route: 048
     Dates: start: 20191001, end: 20200229

REACTIONS (3)
  - Cough [Recovering/Resolving]
  - Swelling [Recovering/Resolving]
  - Oropharyngeal pain [Recovering/Resolving]

NARRATIVE: CASE EVENT DATE: 20200120
